FAERS Safety Report 5124011-6 (Version None)
Quarter: 2006Q3

REPORT INFORMATION
  Report Type: 
  Country: None (occurrence: None)
  Receive Date: 20060811
  Receipt Date: 20060501
  Transmission Date: 20061208
  Serious: No
  Sender: FDA-Public Use
  Company Number: S06-USA-01088-01

PATIENT
  Age: 58 Year
  Sex: Male

DRUGS (14)
  1. NAMENDA [Suspect]
     Indication: MIGRAINE
     Dosage: 5 MG QD PO
     Route: 048
     Dates: start: 20060121, end: 20060127
  2. NAMENDA [Suspect]
     Indication: MIGRAINE
     Dosage: 5 MG BID PO
     Route: 048
     Dates: start: 20060128, end: 20060203
  3. NAMENDA [Suspect]
     Indication: MIGRAINE
     Dosage: 15 MG QD PO
     Route: 048
     Dates: start: 20060204, end: 20060210
  4. NAMENDA [Suspect]
     Indication: MIGRAINE
     Dosage: 10 MG BID PO
     Route: 048
     Dates: start: 20060211, end: 20060407
  5. TOPAMAX [Concomitant]
  6. AMBIEN [Concomitant]
  7. VALIUM [Concomitant]
  8. SINGULAIR [Concomitant]
  9. ZYRTEC [Concomitant]
  10. ATROVENT [Concomitant]
  11. SEREVENT [Concomitant]
  12. NASONEX [Concomitant]
  13. FLOVENT [Concomitant]
  14. IMITREX [Concomitant]

REACTIONS (2)
  - EPISCLERITIS [None]
  - VISION BLURRED [None]
